FAERS Safety Report 18124023 (Version 1)
Quarter: 2020Q3

REPORT INFORMATION
  Report Type: Spontaneous
  Country: CA (occurrence: CA)
  Receive Date: 20200807
  Receipt Date: 20200807
  Transmission Date: 20201103
  Serious: Yes (Other)
  Sender: FDA-Public Use
  Company Number: CA-PFIZER INC-2020294672

PATIENT
  Age: 54 Year
  Sex: Male

DRUGS (1)
  1. DOSTINEX [Suspect]
     Active Substance: CABERGOLINE
     Dosage: UNK

REACTIONS (4)
  - Hypertension [Unknown]
  - Acromegaly [Unknown]
  - Cerebrovascular accident [Unknown]
  - Neoplasm [Unknown]

NARRATIVE: CASE EVENT DATE: 201811
